FAERS Safety Report 16008551 (Version 1)
Quarter: 2019Q1

REPORT INFORMATION
  Report Type: Spontaneous
  Country: US (occurrence: US)
  Receive Date: 20190225
  Receipt Date: 20190225
  Transmission Date: 20190418
  Serious: Yes (Hospitalization)
  Sender: FDA-Public Use
  Company Number: US-ORPHAN EUROPE-2063129

PATIENT
  Age: 12 Month
  Sex: Male

DRUGS (2)
  1. CARBAGLU [Suspect]
     Active Substance: CARGLUMIC ACID
     Indication: MITOCHONDRIAL CYTOPATHY
     Dates: start: 201807
  2. SYNAGIS [Concomitant]
     Active Substance: PALIVIZUMAB

REACTIONS (4)
  - Viral infection [None]
  - Diarrhoea [Unknown]
  - Pyrexia [Unknown]
  - Off label use [Unknown]

NARRATIVE: CASE EVENT DATE: 201807
